FAERS Safety Report 19370967 (Version 2)
Quarter: 2021Q2

REPORT INFORMATION
  Report Type: Report from Study
  Country: KR (occurrence: KR)
  Receive Date: 20210604
  Receipt Date: 20210612
  Transmission Date: 20210717
  Serious: Yes (Other)
  Sender: FDA-Public Use
  Company Number: KR-AMGEN INC.-KORCT2021084271

PATIENT
  Age: 73 Year
  Sex: Male

DRUGS (46)
  1. FILGRASTIM [Suspect]
     Active Substance: FILGRASTIM
     Dosage: 300 UNK
     Route: 065
     Dates: start: 20120302, end: 20120306
  2. CHLORPHENAMINE [Concomitant]
     Active Substance: CHLORPHENIRAMINE MALEATE
     Indication: PRODUCT USED FOR UNKNOWN INDICATION
     Dosage: 1 UNK
     Dates: start: 20110823, end: 20120827
  3. ITOPRIDE [Concomitant]
     Active Substance: ITOPRIDE
     Indication: PRODUCT USED FOR UNKNOWN INDICATION
     Dosage: 150 MILLIGRAM
     Dates: start: 20110809
  4. LANSOPRAZOLE. [Concomitant]
     Active Substance: LANSOPRAZOLE
     Indication: PRODUCT USED FOR UNKNOWN INDICATION
     Dosage: 30 MILLIGRAM
     Dates: start: 20110810
  5. LENOGRASTIM RECOMBINANT [Concomitant]
     Active Substance: LENOGRASTIM
     Dosage: 250 UNK
     Dates: start: 20120313, end: 20120313
  6. FILGRASTIM [Suspect]
     Active Substance: FILGRASTIM
     Dosage: 300 UNK
     Route: 065
     Dates: start: 20111027, end: 20111029
  7. FILGRASTIM [Suspect]
     Active Substance: FILGRASTIM
     Dosage: 300 UNK
     Route: 065
     Dates: start: 20120203, end: 20120206
  8. FILGRASTIM [Suspect]
     Active Substance: FILGRASTIM
     Dosage: 300 UNK
     Route: 065
     Dates: start: 20120220, end: 20120220
  9. FILGRASTIM [Suspect]
     Active Substance: FILGRASTIM
     Dosage: 300 UNK
     Route: 065
     Dates: start: 20120508, end: 20120508
  10. DECITABINE. [Concomitant]
     Active Substance: DECITABINE
     Dosage: 20 UNK, QD
     Dates: start: 20111031, end: 20111104
  11. DECITABINE. [Concomitant]
     Active Substance: DECITABINE
     Dosage: 20 UNK, QD
     Dates: start: 20110927, end: 20111001
  12. ACICLOVIR [Concomitant]
     Active Substance: ACYCLOVIR
     Indication: PRODUCT USED FOR UNKNOWN INDICATION
     Dosage: 800 MILLIGRAM
     Dates: start: 20111205, end: 20120104
  13. CEFDITOREN [Concomitant]
     Active Substance: CEFDITOREN
     Indication: PRODUCT USED FOR UNKNOWN INDICATION
     Dosage: 300 MILLIGRAM
     Dates: start: 20120406, end: 20120412
  14. CEFEPIME [Concomitant]
     Active Substance: CEFEPIME HYDROCHLORIDE
     Indication: PRODUCT USED FOR UNKNOWN INDICATION
     Dosage: 4000 MILLIGRAM
     Dates: start: 20120329, end: 20120405
  15. FILGRASTIM [Suspect]
     Active Substance: FILGRASTIM
     Indication: PRODUCT USED FOR UNKNOWN INDICATION
     Dosage: 300 UNK
     Route: 065
     Dates: start: 20110919, end: 20110922
  16. FILGRASTIM [Suspect]
     Active Substance: FILGRASTIM
     Dosage: 300 UNK
     Route: 065
     Dates: start: 20120516, end: 20120516
  17. DECITABINE. [Concomitant]
     Active Substance: DECITABINE
     Dosage: 20 UNK, QD
     Dates: start: 20120302, end: 20120306
  18. ITRACONAZOLE. [Concomitant]
     Active Substance: ITRACONAZOLE
     Indication: PRODUCT USED FOR UNKNOWN INDICATION
     Dosage: 400 MILLIGRAM
     Dates: start: 20110823, end: 20110828
  19. ITRACONAZOLE. [Concomitant]
     Active Substance: ITRACONAZOLE
     Dosage: 400 MILLIGRAM
     Dates: start: 20111006, end: 20111030
  20. CLOPERASTINE [Concomitant]
     Active Substance: CLOPERASTINE
     Indication: PRODUCT USED FOR UNKNOWN INDICATION
     Dosage: 24 UNK
     Dates: start: 20110811, end: 20110904
  21. FLUCONAZOLE. [Concomitant]
     Active Substance: FLUCONAZOLE
     Indication: PRODUCT USED FOR UNKNOWN INDICATION
     Dosage: 100 MILLIGRAM
     Dates: start: 20120105, end: 20120117
  22. ITRACONAZOLE. [Concomitant]
     Active Substance: ITRACONAZOLE
     Dosage: 400 MILLIGRAM
     Dates: start: 20111031, end: 20111102
  23. LENOGRASTIM RECOMBINANT [Concomitant]
     Active Substance: LENOGRASTIM
     Indication: PRODUCT USED FOR UNKNOWN INDICATION
     Dosage: 250 UNK
     Dates: start: 20110923, end: 20110923
  24. TAMSULOSIN [Concomitant]
     Active Substance: TAMSULOSIN
     Indication: PRODUCT USED FOR UNKNOWN INDICATION
     Dosage: 0.2 MILLIGRAM
     Dates: start: 20110825
  25. FILGRASTIM [Suspect]
     Active Substance: FILGRASTIM
     Dosage: 300 UNK
     Route: 065
     Dates: start: 20120102, end: 20120102
  26. FILGRASTIM [Suspect]
     Active Substance: FILGRASTIM
     Dosage: 300 UNK
     Route: 065
     Dates: start: 20120405, end: 20120405
  27. METOCLOPRAMIDE. [Concomitant]
     Active Substance: METOCLOPRAMIDE
     Indication: PRODUCT USED FOR UNKNOWN INDICATION
     Dosage: 30 MILLIGRAM
     Dates: start: 20110823, end: 20110827
  28. FILGRASTIM [Suspect]
     Active Substance: FILGRASTIM
     Dosage: 300 UNK
     Route: 065
     Dates: start: 20120202, end: 20120202
  29. FILGRASTIM [Suspect]
     Active Substance: FILGRASTIM
     Dosage: 300 UNK
     Route: 065
     Dates: start: 20120329, end: 20120401
  30. DECITABINE. [Concomitant]
     Active Substance: DECITABINE
     Indication: PRODUCT USED FOR UNKNOWN INDICATION
     Dosage: 20 UNK, QD
     Dates: start: 20110823, end: 20110827
  31. DECITABINE. [Concomitant]
     Active Substance: DECITABINE
     Dosage: 20 UNK, QD
     Dates: start: 20111205, end: 20111209
  32. MEROPENEM. [Concomitant]
     Active Substance: MEROPENEM
     Indication: PRODUCT USED FOR UNKNOWN INDICATION
     Dosage: 3000 MILLIGRAM
     Dates: start: 20110818, end: 20110828
  33. VANCOMYCIN [Concomitant]
     Active Substance: VANCOMYCIN
     Indication: PRODUCT USED FOR UNKNOWN INDICATION
     Dosage: 2000 MILLIGRAM
     Dates: start: 20110822, end: 20110824
  34. FILGRASTIM [Suspect]
     Active Substance: FILGRASTIM
     Dosage: 300 UNK
     Route: 065
     Dates: start: 20110926, end: 20110926
  35. DECITABINE. [Concomitant]
     Active Substance: DECITABINE
     Dosage: 20 UNK, QD
     Dates: start: 20120408, end: 20120412
  36. ACICLOVIR [Concomitant]
     Active Substance: ACYCLOVIR
     Dosage: 800 MILLIGRAM
     Dates: start: 20110905, end: 20110926
  37. ACICLOVIR [Concomitant]
     Active Substance: ACYCLOVIR
     Dosage: 800 MILLIGRAM
     Dates: start: 20111031, end: 20111204
  38. FOLIC ACID. [Concomitant]
     Active Substance: FOLIC ACID
     Indication: PRODUCT USED FOR UNKNOWN INDICATION
     Dosage: 1 MILLIGRAM
     Dates: start: 20110810
  39. FILGRASTIM [Suspect]
     Active Substance: FILGRASTIM
     Dosage: 300 UNK
     Route: 065
     Dates: start: 20111129, end: 20111201
  40. FILGRASTIM [Suspect]
     Active Substance: FILGRASTIM
     Dosage: 300 UNK
     Route: 065
     Dates: start: 20120301, end: 20120301
  41. DECITABINE. [Concomitant]
     Active Substance: DECITABINE
     Dosage: 20 UNK, QD
     Dates: start: 20120105, end: 20120109
  42. DECITABINE. [Concomitant]
     Active Substance: DECITABINE
     Dosage: 20 UNK, QD
     Dates: start: 20120203, end: 20120207
  43. DECITABINE. [Concomitant]
     Active Substance: DECITABINE
     Dosage: 20 UNK, QD
     Dates: start: 20120518, end: 20120522
  44. ACICLOVIR [Concomitant]
     Active Substance: ACYCLOVIR
     Dosage: 800 MILLIGRAM
     Dates: start: 20111006, end: 20111030
  45. ACICLOVIR [Concomitant]
     Active Substance: ACYCLOVIR
     Dosage: 800 MILLIGRAM
     Dates: start: 20120105, end: 20120117
  46. ITRACONAZOLE. [Concomitant]
     Active Substance: ITRACONAZOLE
     Dosage: 400 MILLIGRAM
     Dates: start: 20110905, end: 20110926

REACTIONS (6)
  - Nausea [Recovered/Resolved]
  - Asthenia [Recovered/Resolved]
  - Dyspepsia [Recovered/Resolved]
  - Dyspnoea [Not Recovered/Not Resolved]
  - Dizziness [Recovered/Resolved]
  - Pancytopenia [Recovered/Resolved]

NARRATIVE: CASE EVENT DATE: 20110919
